FAERS Safety Report 9757262 (Version 3)
Quarter: 2014Q1

REPORT INFORMATION
  Report Type: Report from Study
  Country: US (occurrence: US)
  Receive Date: 20131213
  Receipt Date: 20140314
  Transmission Date: 20141002
  Serious: Yes (Hospitalization)
  Sender: FDA-Public Use
  Company Number: US-ABBVIE-13P-163-1131720-00

PATIENT
  Age: 32 Year
  Sex: Female
  Weight: 74.91 kg

DRUGS (29)
  1. HUMIRA [Suspect]
     Indication: CROHN^S DISEASE
     Dosage: ONCE
     Dates: start: 2010, end: 2010
  2. HUMIRA [Suspect]
     Dosage: ONCE
     Dates: start: 2010, end: 2010
  3. HUMIRA [Suspect]
     Dates: start: 2010
  4. NUCYNTA [Suspect]
     Indication: PAIN
     Dosage: 2 TABS TWICE A DAY AS NEEDED
     Dates: start: 201401
  5. ROBAXIN [Concomitant]
     Indication: NECK PAIN
     Dosage: 500 MG PRN QID
  6. ROBAXIN [Concomitant]
     Indication: MUSCULOSKELETAL PAIN
  7. ROBAXIN [Concomitant]
     Indication: MUSCLE RELAXANT THERAPY
  8. ANALPRAM HC [Concomitant]
     Indication: ANORECTAL DISCOMFORT
  9. KLONOPIN [Concomitant]
     Indication: ANXIETY
  10. MULTIVITAMIN [Concomitant]
     Indication: VITAMIN SUPPLEMENTATION
  11. GAVISCON ES [Concomitant]
     Indication: GASTROOESOPHAGEAL REFLUX DISEASE
  12. OMEPRAZOLE [Concomitant]
     Indication: GASTROOESOPHAGEAL REFLUX DISEASE
  13. MAGNESIUM OXIDE [Concomitant]
     Indication: MIGRAINE PROPHYLAXIS
     Dosage: 400 MG, 1 TAB BID
  14. MAGNESIUM OXIDE [Concomitant]
     Indication: MINERAL SUPPLEMENTATION
  15. LOMOTIL [Concomitant]
     Indication: DIARRHOEA
  16. NEURONTIN [Concomitant]
     Indication: NEURALGIA
     Dosage: 400 MG TID
  17. NEURONTIN [Concomitant]
     Indication: PLANTAR FASCIITIS
  18. NEURONTIN [Concomitant]
     Indication: NEUROPATHY PERIPHERAL
  19. LEXAPRO [Concomitant]
     Indication: DEPRESSION
  20. AMITRIPTYLINE [Concomitant]
     Indication: INSOMNIA
     Dosage: AT BEDTIME
  21. ROBINUL FORTE [Concomitant]
     Indication: GASTROOESOPHAGEAL REFLUX DISEASE
  22. INDERAL [Concomitant]
     Indication: HYPERTENSION
  23. QUESTRAN LIGHT [Concomitant]
     Indication: SHORT-BOWEL SYNDROME
     Dosage: 4 GRAMS IN 8 OZ OF WATER DAILY
  24. CARAFATE [Concomitant]
     Indication: SHORT-BOWEL SYNDROME
     Dosage: 1 GM QID
  25. CARAFATE [Concomitant]
     Indication: CROHN^S DISEASE
  26. IMITREX [Concomitant]
     Indication: MIGRAINE
     Dosage: 100 MG, PRN UP TO TWO DOSES
  27. FOLIC ACID [Concomitant]
     Indication: VITAMIN SUPPLEMENTATION
     Dosage: 1 MG DAILY
  28. TRAMADOL [Concomitant]
     Indication: ABDOMINAL PAIN
     Dosage: 50 MG, 1, QID PRN
  29. HYDROXYZINE [Concomitant]
     Indication: PRODUCT USED FOR UNKNOWN INDICATION
     Dosage: 25 MG, 1 TID, AS NEEDED, TO HELP TRAMADOL WORK BETTER

REACTIONS (16)
  - Flank pain [Unknown]
  - Nausea [Not Recovered/Not Resolved]
  - Vomiting [Recovered/Resolved]
  - Abdominal pain [Recovered/Resolved]
  - Diarrhoea [Not Recovered/Not Resolved]
  - Inappropriate schedule of drug administration [Not Recovered/Not Resolved]
  - Decreased appetite [Recovered/Resolved]
  - Urinary tract infection [Recovered/Resolved]
  - Impaired gastric emptying [Not Recovered/Not Resolved]
  - Infection [Unknown]
  - Blood triglycerides increased [Not Recovered/Not Resolved]
  - Urinary tract infection [Not Recovered/Not Resolved]
  - Abdominal distension [Not Recovered/Not Resolved]
  - Alopecia [Not Recovered/Not Resolved]
  - Anxiety [Unknown]
  - Pruritus [Unknown]
